FAERS Safety Report 7670510-2 (Version None)
Quarter: 2011Q3

REPORT INFORMATION
  Report Type: 
  Country: None (occurrence: None)
  Receive Date: 20110809
  Receipt Date: 20110801
  Transmission Date: 20111222
  Serious: No
  Sender: FDA-Public Use
  Company Number: US-BIOGENIDEC-2011BI028728

PATIENT
  Age: 48 Year
  Sex: Male

DRUGS (2)
  1. TYSABRI [Suspect]
     Indication: MULTIPLE SCLEROSIS
     Route: 042
     Dates: start: 20110701
  2. TYSABRI [Suspect]
     Route: 042
     Dates: start: 20080123, end: 20091202

REACTIONS (3)
  - INSOMNIA [None]
  - ENERGY INCREASED [None]
  - DIPLOPIA [None]
